FAERS Safety Report 10717911 (Version 1)
Quarter: 2015Q1

REPORT INFORMATION
  Report Type: Spontaneous
  Country: US (occurrence: US)
  Receive Date: 20150116
  Receipt Date: 20150116
  Transmission Date: 20150721
  Serious: No
  Sender: FDA-Public Use
  Company Number: US-TEVA-527926USA

PATIENT
  Sex: Female

DRUGS (7)
  1. METRONIDAZOLE. [Concomitant]
     Active Substance: METRONIDAZOLE
  2. AZITHROMYCIN [Concomitant]
     Active Substance: AZITHROMYCIN ANHYDROUS
  3. CLINDAMYCIN [Concomitant]
     Active Substance: CLINDAMYCIN\CLINDAMYCIN PHOSPHATE
  4. VALTREX [Concomitant]
     Active Substance: VALACYCLOVIR HYDROCHLORIDE
     Indication: HERPES VIRUS INFECTION
  5. FLUCONAZOLE. [Concomitant]
     Active Substance: FLUCONAZOLE
  6. FLORA-Q [Concomitant]
  7. COPAXONE [Suspect]
     Active Substance: GLATIRAMER ACETATE
     Dosage: 17.1429 MILLIGRAM DAILY;
     Route: 058
     Dates: start: 20140502

REACTIONS (1)
  - Herpes virus infection [Not Recovered/Not Resolved]
